FAERS Safety Report 16116352 (Version 2)
Quarter: 2019Q2

REPORT INFORMATION
  Report Type: Report from Study
  Country: SE (occurrence: SE)
  Receive Date: 20190326
  Receipt Date: 20190403
  Transmission Date: 20190711
  Serious: Yes (Death, Other)
  Sender: FDA-Public Use
  Company Number: SE-ACTELION-A-CH2018-183400

PATIENT
  Age: 75 Year
  Sex: Female
  Weight: 68 kg

DRUGS (18)
  1. PARACETAMOL [Concomitant]
     Active Substance: ACETAMINOPHEN
     Dosage: 500 MG
     Dates: start: 20181030
  2. UPTRAVI [Suspect]
     Active Substance: SELEXIPAG
     Indication: PULMONARY ARTERIAL HYPERTENSION
     Dosage: 2000 MCG TOTAL DAILY DOSE
     Route: 048
     Dates: start: 20181119, end: 20181126
  3. UPTRAVI [Suspect]
     Active Substance: SELEXIPAG
     Dosage: 800 MCG TOTAL DAILY DOSE
     Route: 048
     Dates: start: 20181026, end: 20181102
  4. UPTRAVI [Suspect]
     Active Substance: SELEXIPAG
     Dosage: 1200 MCG TOTAL DAILY DOSE
     Route: 048
     Dates: start: 20181102, end: 20181109
  5. INOLAXOL [Concomitant]
     Active Substance: HERBALS\KARAYA GUM
     Indication: DIARRHOEA
     Dosage: UNK
     Route: 048
     Dates: start: 20181102
  6. UPTRAVI [Suspect]
     Active Substance: SELEXIPAG
     Dosage: 1600 MCG TOTAL DAILY DOSE
     Route: 048
     Dates: start: 20181109, end: 20181119
  7. VOLIBRIS [Concomitant]
     Active Substance: AMBRISENTAN
     Indication: PULMONARY ARTERIAL HYPERTENSION
     Dosage: 10 TOTAL DAILY DOSE
     Route: 048
     Dates: start: 20161130
  8. NIFEDEL [Concomitant]
     Indication: HYPERTENSION
     Dosage: UNK
     Route: 048
     Dates: start: 20121130
  9. FUROSEMID [Concomitant]
     Active Substance: FUROSEMIDE
     Dosage: UNK
     Route: 048
     Dates: start: 20180821
  10. ADCIRCA [Concomitant]
     Active Substance: TADALAFIL
     Dosage: 40 TOTAL DAILY DOSE
     Dates: start: 20130111
  11. CYANOCOBALAMIN. [Concomitant]
     Active Substance: CYANOCOBALAMIN
     Dosage: 1 MG
  12. UPTRAVI [Suspect]
     Active Substance: SELEXIPAG
     Dosage: 400 MCG TOTAL DAILY DOSE
     Route: 048
     Dates: start: 20181019, end: 20181026
  13. UPTRAVI [Suspect]
     Active Substance: SELEXIPAG
     Dosage: 1600 MCG TOTAL DAILY DOSE
     Route: 048
     Dates: start: 20181126, end: 20190228
  14. VOLIBRIS [Concomitant]
     Active Substance: AMBRISENTAN
     Dosage: 5 TOTAL DAILY DOSE
     Route: 048
     Dates: start: 20141201, end: 20161129
  15. SIMVASTATIN. [Concomitant]
     Active Substance: SIMVASTATIN
     Indication: HYPERLIPIDAEMIA
     Dosage: UNK
     Route: 048
     Dates: start: 20110118
  16. WARFARIN [Concomitant]
     Active Substance: WARFARIN
     Indication: THROMBOSIS PROPHYLAXIS
     Dosage: UNK
     Route: 048
     Dates: start: 20130111
  17. LEVOTHYROXIN [Concomitant]
     Active Substance: LEVOTHYROXINE
     Indication: HYPOTHYROIDISM
     Dosage: UNK
     Route: 048
  18. SPIRONOLACTON [Concomitant]
     Active Substance: SPIRONOLACTONE
     Dosage: UNK
     Route: 048
     Dates: start: 20181010

REACTIONS (5)
  - Headache [Unknown]
  - Diarrhoea [Unknown]
  - Upper respiratory tract infection [Unknown]
  - Sudden death [Fatal]
  - Cerebrovascular accident [Unknown]

NARRATIVE: CASE EVENT DATE: 201811
